FAERS Safety Report 25590192 (Version 1)
Quarter: 2025Q3

REPORT INFORMATION
  Report Type: Spontaneous
  Country: ME (occurrence: ME)
  Receive Date: 20250722
  Receipt Date: 20250722
  Transmission Date: 20251021
  Serious: Yes (Hospitalization, Other)
  Sender: AMGEN
  Company Number: ME-AMGEN-MNESP2025142031

PATIENT
  Age: 47 Year
  Sex: Female

DRUGS (5)
  1. NEUPOGEN [Suspect]
     Active Substance: FILGRASTIM
     Indication: Neutropenia
     Route: 065
  2. KYBERNIN [Concomitant]
     Active Substance: ANTITHROMBIN III HUMAN
     Dosage: 1500 INTERNATIONAL UNIT, QD
  3. ADRIABLASTINA [Concomitant]
     Active Substance: DOXORUBICIN
     Indication: Adenocarcinoma
  4. MITOMYCIN [Concomitant]
     Active Substance: MITOMYCIN
     Indication: Adenocarcinoma
  5. CISPLATIN [Concomitant]
     Active Substance: CISPLATIN
     Indication: Adenocarcinoma

REACTIONS (3)
  - Pelvic sepsis [Recovering/Resolving]
  - Fistula [Recovering/Resolving]
  - Wound dehiscence [Recovering/Resolving]
